FAERS Safety Report 17311246 (Version 1)
Quarter: 2020Q1

REPORT INFORMATION
  Report Type: Spontaneous
  Country: US (occurrence: US)
  Receive Date: 20200123
  Receipt Date: 20200123
  Transmission Date: 20200409
  Serious: Yes (Hospitalization)
  Sender: FDA-Public Use
  Company Number: US-ROCHE-2388850

PATIENT
  Age: 25 Year
  Sex: Male

DRUGS (9)
  1. RASBURICASE [Concomitant]
     Active Substance: RASBURICASE
     Indication: BLOOD URIC ACID INCREASED
  2. PREDNISONE. [Suspect]
     Active Substance: PREDNISONE
     Indication: BURKITT^S LYMPHOMA
     Dosage: 6 CYCLES
     Route: 065
  3. RITUXIMAB. [Suspect]
     Active Substance: RITUXIMAB
     Indication: BURKITT^S LYMPHOMA
     Dosage: 6 CYCLES
     Route: 065
  4. CYCLOPHOSPHAMIDE. [Suspect]
     Active Substance: CYCLOPHOSPHAMIDE
     Indication: BURKITT^S LYMPHOMA
     Dosage: 6 CYCLES
     Route: 065
  5. DEXAMETHASONE. [Concomitant]
     Active Substance: DEXAMETHASONE
  6. ALLOPURINOL. [Concomitant]
     Active Substance: ALLOPURINOL
  7. VINCRISTINE [Suspect]
     Active Substance: VINCRISTINE
     Indication: BURKITT^S LYMPHOMA
     Dosage: 6 CYCLES
     Route: 065
  8. ETOPOSIDE. [Suspect]
     Active Substance: ETOPOSIDE
     Indication: BURKITT^S LYMPHOMA
     Dosage: 6 CYCLES
     Route: 065
  9. DOXORUBICIN [Suspect]
     Active Substance: DOXORUBICIN
     Indication: BURKITT^S LYMPHOMA
     Dosage: 6 CYCLES
     Route: 065

REACTIONS (6)
  - Nausea [Unknown]
  - Neutropenia [Recovered/Resolved]
  - Decreased appetite [Unknown]
  - Mucosal inflammation [Unknown]
  - Neuropathy peripheral [Unknown]
  - Headache [Unknown]
